FAERS Safety Report 8791767 (Version 3)
Quarter: 2012Q4

REPORT INFORMATION
  Report Type: 
  Country: US (occurrence: US)
  Receive Date: 20120918
  Receipt Date: 20121008
  Transmission Date: 20130627
  Serious: Yes (Hospitalization, Other)
  Sender: FDA-Public Use
  Company Number: US-009507513-2008-183726-NL

PATIENT

DRUGS (5)
  1. NUVARING [Suspect]
     Indication: CONTRACEPTION
     Dosage: CONTINUING: NO
     Route: 067
     Dates: start: 200504, end: 200506
  2. PROZAC [Concomitant]
     Indication: PRODUCT USED FOR UNKNOWN INDICATION
     Dosage: UNK DF, UNK
     Dates: end: 2005
  3. GLUCOPHAGE [Concomitant]
     Indication: PRODUCT USED FOR UNKNOWN INDICATION
     Dosage: UNK DF, UNK
  4. ALBUTEROL [Concomitant]
     Indication: PRODUCT USED FOR UNKNOWN INDICATION
     Dosage: UNK, prn
  5. PRILOSEC [Concomitant]
     Indication: PRODUCT USED FOR UNKNOWN INDICATION

REACTIONS (31)
  - Cholecystectomy [Unknown]
  - Deep vein thrombosis [Recovered/Resolved]
  - Urinary tract infection [Unknown]
  - Constipation [Unknown]
  - Pain in extremity [Unknown]
  - Depression [Not Recovered/Not Resolved]
  - Hypercoagulation [Unknown]
  - Night sweats [Unknown]
  - Hot flush [Unknown]
  - Sleep disorder [Unknown]
  - Menstruation irregular [Unknown]
  - Dysmenorrhoea [Recovered/Resolved]
  - Upper respiratory tract infection [Unknown]
  - Bronchitis [Unknown]
  - Drug ineffective [Unknown]
  - Drug ineffective [Recovered/Resolved]
  - Chlamydia test positive [Unknown]
  - Chlamydia test positive [Unknown]
  - Polycystic ovaries [Unknown]
  - Ovarian cyst ruptured [Unknown]
  - Pollakiuria [Unknown]
  - Ovulation pain [Unknown]
  - Back pain [Unknown]
  - Cholelithiasis [Recovered/Resolved]
  - Hepatic steatosis [Unknown]
  - Hypersensitivity [Unknown]
  - Adenoidectomy [Unknown]
  - Tonsillectomy [Unknown]
  - Pain in extremity [Unknown]
  - Oedema peripheral [Unknown]
  - Venous insufficiency [Unknown]
